FAERS Safety Report 20659194 (Version 1)
Quarter: 2022Q1

REPORT INFORMATION
  Report Type: Spontaneous
  Country: US (occurrence: US)
  Receive Date: 20220331
  Receipt Date: 20220331
  Transmission Date: 20220423
  Serious: No
  Sender: FDA-Public Use
  Company Number: US-GW PHARMA-202203USGW01587

PATIENT
  Sex: Male
  Weight: 107.93 kg

DRUGS (1)
  1. EPIDIOLEX [Suspect]
     Active Substance: CANNABIDIOL
     Indication: Tuberous sclerosis complex
     Dosage: 2.78 MG/KG/DAY, 150 MILLIGRAM, BID
     Route: 048
     Dates: start: 202109

REACTIONS (5)
  - Constipation [Unknown]
  - Seizure [Unknown]
  - Somnolence [Unknown]
  - Decreased appetite [Unknown]
  - Diarrhoea [Unknown]
